FAERS Safety Report 8983106 (Version 2)
Quarter: 2013Q1

REPORT INFORMATION
  Report Type: Spontaneous
  Country: FR (occurrence: FR)
  Receive Date: 20121223
  Receipt Date: 20130110
  Transmission Date: 20140127
  Serious: Yes (Hospitalization)
  Sender: FDA-Public Use
  Company Number: FR-AMGEN-FRASP2012082314

PATIENT
  Age: 61 Year
  Sex: Female

DRUGS (5)
  1. NEULASTA [Suspect]
     Indication: APLASIA
     Dosage: UNK
     Route: 042
     Dates: start: 20121008
  2. TAXOTERE [Concomitant]
     Dosage: UNK
     Route: 042
     Dates: start: 20121005
  3. CYCLOPHOSPHAMIDE [Concomitant]
     Dosage: UNK
  4. EPIRUBICINE [Concomitant]
     Dosage: UNK
  5. FLUOROURACIL [Concomitant]
     Dosage: UNK

REACTIONS (3)
  - Pyrexia [Recovered/Resolved]
  - Leukocytosis [Recovered/Resolved]
  - Bone pain [Recovered/Resolved]
